FAERS Safety Report 13697764 (Version 2)
Quarter: 2017Q3

REPORT INFORMATION
  Report Type: Spontaneous
  Country: IT (occurrence: IT)
  Receive Date: 20170628
  Receipt Date: 20170726
  Transmission Date: 20171127
  Serious: Yes (Hospitalization)
  Sender: FDA-Public Use
  Company Number: IT-MYLANLABS-2017M1037489

PATIENT

DRUGS (3)
  1. THIOCOLCHICOSIDE [Interacting]
     Active Substance: THIOCOLCHICOSIDE
     Indication: PRODUCT USED FOR UNKNOWN INDICATION
     Dosage: 4MG
     Route: 030
  2. BETAMETHASONE. [Interacting]
     Active Substance: BETAMETHASONE
     Indication: PRODUCT USED FOR UNKNOWN INDICATION
     Dosage: 4MG
     Route: 030
  3. DICLOFENAC [Suspect]
     Active Substance: DICLOFENAC
     Indication: PRODUCT USED FOR UNKNOWN INDICATION
     Dosage: 75MG
     Route: 030

REACTIONS (3)
  - Drug interaction [Recovering/Resolving]
  - Abdominal pain [Recovering/Resolving]
  - Incorrect drug administration duration [Recovering/Resolving]
